FAERS Safety Report 23195781 (Version 2)
Quarter: 2024Q3

REPORT INFORMATION
  Report Type: Spontaneous
  Country: CN (occurrence: CN)
  Receive Date: 20231117
  Receipt Date: 20240724
  Transmission Date: 20241016
  Serious: Yes (Other)
  Sender: CHEPLAPHARM
  Company Number: CN-ELI_LILLY_AND_COMPANY-CN202311002098

PATIENT
  Age: 19 Year
  Sex: Female
  Weight: 47 kg

DRUGS (14)
  1. OLANZAPINE [Interacting]
     Active Substance: OLANZAPINE
     Indication: Schizophrenia
     Dosage: BY NIGHT?DAILY DOSE: 5 MILLIGRAM
     Route: 048
     Dates: start: 20220920
  2. OLANZAPINE [Interacting]
     Active Substance: OLANZAPINE
     Indication: Schizophrenia
     Dosage: BY NIGHT?DAILY DOSE: 10 MILLIGRAM
     Dates: start: 20220924
  3. OLANZAPINE [Interacting]
     Active Substance: OLANZAPINE
     Indication: Schizophrenia
     Dosage: DAILY DOSE: 2.5 MILLIGRAM
     Dates: start: 20221012
  4. AMISULPRIDE [Interacting]
     Active Substance: AMISULPRIDE
     Indication: Psychotic symptom
     Dosage: DAILY DOSE: 0.4 GRAM
     Dates: start: 202209
  5. AMISULPRIDE [Interacting]
     Active Substance: AMISULPRIDE
     Indication: Psychotic symptom
     Dosage: DAILY DOSE: 1 GRAM
     Dates: start: 20220929
  6. AMISULPRIDE [Interacting]
     Active Substance: AMISULPRIDE
     Indication: Psychotic symptom
     Dosage: DAILY DOSE: 0.4 GRAM
     Dates: start: 20221012, end: 20221018
  7. ARIPIPRAZOLE [Concomitant]
     Active Substance: ARIPIPRAZOLE
     Indication: Schizophrenia
     Dates: end: 20230927
  8. ARIPIPRAZOLE [Concomitant]
     Active Substance: ARIPIPRAZOLE
     Indication: Schizophrenia
  9. ZOPICLONE [Concomitant]
     Active Substance: ZOPICLONE
     Indication: Insomnia
     Dosage: DAILY DOSE: 7.5 MILLIGRAM
     Dates: end: 20221009
  10. BLONANSERIN [Concomitant]
     Active Substance: BLONANSERIN
     Indication: Schizophrenia
     Dosage: ONGOING?DAILY DOSE: 8 MILLIGRAM
     Dates: start: 20221013
  11. BLONANSERIN [Concomitant]
     Active Substance: BLONANSERIN
     Indication: Schizophrenia
     Dosage: DAILY DOSE: 12 MILLIGRAM
     Dates: start: 20221016
  12. BLONANSERIN [Concomitant]
     Active Substance: BLONANSERIN
     Indication: Schizophrenia
     Dosage: DAILY DOSE: 16 MILLIGRAM
     Dates: start: 20221020
  13. BLONANSERIN [Concomitant]
     Active Substance: BLONANSERIN
     Indication: Schizophrenia
     Dosage: DAILY DOSE: 20 MILLIGRAM
     Dates: start: 20221023
  14. BLONANSERIN [Concomitant]
     Active Substance: BLONANSERIN
     Indication: Schizophrenia
     Dosage: 24 MG, DAILY?DAILY DOSE: 24 MILLIGRAM
     Dates: start: 20221027

REACTIONS (7)
  - Hypotension [Recovered/Resolved]
  - Sedation complication [Unknown]
  - Drug interaction [Unknown]
  - Hallucination, auditory [Recovering/Resolving]
  - Lethargy [Unknown]
  - Dizziness [Unknown]
  - Asthenia [Unknown]

NARRATIVE: CASE EVENT DATE: 20221009
